FAERS Safety Report 10809538 (Version 1)
Quarter: 2015Q1

REPORT INFORMATION
  Report Type: Report from Study
  Country: US (occurrence: US)
  Receive Date: 20150217
  Receipt Date: 20150217
  Transmission Date: 20150721
  Serious: No
  Sender: FDA-Public Use
  Company Number: US-ABBVIE-14K-163-1215800-00

PATIENT
  Age: 39 Year
  Sex: Female

DRUGS (3)
  1. HUMIRA [Suspect]
     Active Substance: ADALIMUMAB
  2. HUMIRA [Suspect]
     Active Substance: ADALIMUMAB
     Dates: start: 20140306, end: 20140306
  3. HUMIRA [Suspect]
     Active Substance: ADALIMUMAB
     Indication: COLITIS ULCERATIVE
     Dates: start: 20140220, end: 20140220

REACTIONS (4)
  - Rash papular [Not Recovered/Not Resolved]
  - Rash macular [Not Recovered/Not Resolved]
  - Rash pustular [Not Recovered/Not Resolved]
  - Pruritus [Not Recovered/Not Resolved]

NARRATIVE: CASE EVENT DATE: 20140220
